FAERS Safety Report 19394425 (Version 2)
Quarter: 2021Q2

REPORT INFORMATION
  Report Type: Report from Study
  Country: US (occurrence: US)
  Receive Date: 20210609
  Receipt Date: 20210609
  Transmission Date: 20210717
  Serious: Yes (Hospitalization)
  Sender: FDA-Public Use
  Company Number: US-EISAI MEDICAL RESEARCH-EC-2021-094115

PATIENT
  Age: 58 Year
  Sex: Female

DRUGS (3)
  1. LENVATINIB [Suspect]
     Active Substance: LENVATINIB
     Indication: NEUROENDOCRINE TUMOUR
     Route: 048
     Dates: start: 20210525, end: 20210525
  2. LENVATINIB [Suspect]
     Active Substance: LENVATINIB
     Route: 048
     Dates: start: 20210528, end: 20210528
  3. PEMBROLIZUMAB. [Suspect]
     Active Substance: PEMBROLIZUMAB
     Indication: NEUROENDOCRINE TUMOUR
     Route: 041
     Dates: start: 20210525, end: 20210525

REACTIONS (3)
  - Sinus tachycardia [Unknown]
  - Hypertension [Recovered/Resolved]
  - Headache [Unknown]

NARRATIVE: CASE EVENT DATE: 20210529
